FAERS Safety Report 13972920 (Version 1)
Quarter: 2017Q3

REPORT INFORMATION
  Report Type: Spontaneous
  Country: US (occurrence: None)
  Receive Date: 20170914
  Receipt Date: 20170914
  Transmission Date: 20171128
  Serious: No
  Sender: FDA-Public Use
  Company Number: None

PATIENT
  Age: 61 Year
  Sex: Female

DRUGS (14)
  1. FAMOTIDINE. [Concomitant]
     Active Substance: FAMOTIDINE
  2. LEVOXYOL [Concomitant]
  3. CELEBREX [Concomitant]
     Active Substance: CELECOXIB
  4. TRIAMONOLON [Concomitant]
  5. CEPHALEXIN. [Concomitant]
     Active Substance: CEPHALEXIN
  6. OCALIVA [Suspect]
     Active Substance: OBETICHOLIC ACID
     Indication: BILIARY CIRRHOSIS PRIMARY
     Route: 048
     Dates: start: 20170516
  7. HYDROCHLOROT [Concomitant]
     Active Substance: HYDROCHLOROTHIAZIDE
  8. MIRTAZAPINE. [Concomitant]
     Active Substance: MIRTAZAPINE
  9. MUPIROCIN. [Concomitant]
     Active Substance: MUPIROCIN
  10. HYDROXYZ HCL [Concomitant]
     Active Substance: HYDROXYZINE HYDROCHLORIDE
  11. FLUOCINONDE [Concomitant]
  12. URSODIOL. [Concomitant]
     Active Substance: URSODIOL
  13. NAFTIN [Concomitant]
     Active Substance: NAFTIFINE HYDROCHLORIDE
  14. CALCIUM [Concomitant]
     Active Substance: CALCIUM

REACTIONS (1)
  - Pruritus [None]

NARRATIVE: CASE EVENT DATE: 20170516
